FAERS Safety Report 6569995-4 (Version None)
Quarter: 2010Q1

REPORT INFORMATION
  Report Type: 
  Country: None (occurrence: None)
  Receive Date: 20100204
  Receipt Date: 20100127
  Transmission Date: 20100710
  Serious: Yes (Other)
  Sender: FDA-Public Use
  Company Number: US-PERRIGO-09US004083

PATIENT
  Sex: Female
  Weight: 65.76 kg

DRUGS (13)
  1. OXYMETAZOLINE HYDROCHLORIDE EXTRA MOIST 0.05% 065 [Suspect]
     Indication: NASAL CONGESTION
     Dosage: SINGLE USE
     Route: 045
     Dates: start: 20090801, end: 20090801
  2. RHINOCORT [Concomitant]
     Indication: DRUG USE FOR UNKNOWN INDICATION
     Dosage: 32 MCG/ 1-2 SPRAYS INTRANASAL QD
     Route: 045
  3. XOPENEX HFA [Concomitant]
     Indication: ASTHMA
     Dosage: 15 G, 2 PUFFS Q 4-6 HOURS
     Route: 055
  4. BROVANA [Concomitant]
     Indication: ASTHMA
     Dosage: 15 MCG, BID
     Route: 055
  5. CADUET [Concomitant]
     Indication: HYPERTENSION
     Dosage: 10 MG/10 MG, QD
     Route: 048
     Dates: start: 20070101
  6. CADUET [Concomitant]
     Indication: HYPERCHOLESTEROLAEMIA
  7. HYDROCHLOROTHIAZIDE [Concomitant]
     Indication: HYPERTENSION
     Dosage: 12.5 MG, QD
     Route: 048
     Dates: start: 20070101
  8. LISINOPRIL [Concomitant]
     Indication: HYPERTENSION
     Dosage: UNK, QD
     Route: 048
     Dates: start: 20070101
  9. TOPROL-XL [Concomitant]
     Indication: HYPERTENSION
     Dosage: 50 MG, QD
     Route: 048
     Dates: start: 20070101
  10. HERBAL PREPARATION [Concomitant]
     Indication: IRRITABLE BOWEL SYNDROME
     Dosage: UNK
     Route: 065
  11. XANAX [Concomitant]
     Indication: ANXIETY
     Dosage: UNK
     Route: 048
  12. MONOPRIL [Concomitant]
     Indication: HYPERTENSION
     Dosage: UNK
     Route: 048
  13. FLEXERIL [Concomitant]
     Indication: DRUG USE FOR UNKNOWN INDICATION
     Dosage: 10 MG, PRN
     Route: 048

REACTIONS (4)
  - AGEUSIA [None]
  - ANOSMIA [None]
  - LACRIMATION INCREASED [None]
  - NASAL DISCOMFORT [None]
